FAERS Safety Report 4449688-X (Version None)
Quarter: 2004Q3

REPORT INFORMATION
  Report Type: 
  Country: None (occurrence: None)
  Receive Date: 20040913
  Receipt Date: 20040826
  Transmission Date: 20050211
  Serious: Yes (Hospitalization)
  Sender: FDA-Public Use
  Company Number: US-2004-030944

PATIENT
  Sex: Female

DRUGS (2)
  1. BETASERON [Suspect]
     Indication: MULTIPLE SCLEROSIS
     Dosage: 0 SUBCUTANEOUS
     Route: 058
  2. PREDNISONE [Suspect]
     Indication: OEDEMA PERIPHERAL
     Dates: start: 20031201

REACTIONS (5)
  - DRUG HYPERSENSITIVITY [None]
  - INDURATION [None]
  - OEDEMA PERIPHERAL [None]
  - PAIN [None]
  - PSYCHOTIC DISORDER [None]
